FAERS Safety Report 5245241-9 (Version None)
Quarter: 2007Q1

REPORT INFORMATION
  Report Type: 
  Country: None (occurrence: None)
  Receive Date: 20070223
  Receipt Date: 20070216
  Transmission Date: 20070707
  Serious: Yes (Hospitalization)
  Sender: FDA-Public Use
  Company Number: US-ROCHE-483187

PATIENT
  Age: 58 Year
  Sex: Male
  Weight: 95 kg

DRUGS (3)
  1. PEG-INTERFERON ALFA 2A (RO 25-8310) [Suspect]
     Indication: HEPATITIS C
     Route: 058
     Dates: start: 20060918, end: 20061204
  2. RIBAVIRIN [Suspect]
     Indication: HEPATITIS C
     Route: 048
     Dates: start: 20060918, end: 20061129
  3. VX-950 [Suspect]
     Indication: HEPATITIS C
     Route: 048
     Dates: start: 20060918, end: 20061211

REACTIONS (7)
  - ANAEMIA [None]
  - HYPERKALAEMIA [None]
  - IMPAIRED HEALING [None]
  - LIPASE INCREASED [None]
  - RETINAL DETACHMENT [None]
  - RETINAL TEAR [None]
  - VITREOUS HAEMORRHAGE [None]
